FAERS Safety Report 16692286 (Version 1)
Quarter: 2019Q4

REPORT INFORMATION
  Report Type: Spontaneous
  Country: US (occurrence: US)
  Receive Date: 20190809
  Receipt Date: 20190809
  Transmission Date: 20200122
  Serious: Yes (Hospitalization)
  Sender: FDA-Public Use
  Company Number: None

PATIENT
  Age: 65 Year
  Sex: Female

DRUGS (7)
  1. CLOPIDOGREL [Concomitant]
     Active Substance: CLOPIDOGREL BISULFATE
  2. STOOL SOFTNER [Concomitant]
  3. ALLOPURINOL. [Concomitant]
     Active Substance: ALLOPURINOL
  4. DOK [Concomitant]
     Active Substance: DOCUSATE SODIUM
  5. ISOSORB DIN [Concomitant]
  6. SILDENAFIL. [Suspect]
     Active Substance: SILDENAFIL
     Indication: PULMONARY HYPERTENSION
     Dosage: ?          OTHER FREQUENCY:UNK;?
  7. HYDRALZINE [Concomitant]

REACTIONS (5)
  - Fluid retention [None]
  - Foot amputation [None]
  - Aphasia [None]
  - Leg amputation [None]
  - Hand amputation [None]

NARRATIVE: CASE EVENT DATE: 20190318
